FAERS Safety Report 6265792-8 (Version None)
Quarter: 2009Q3

REPORT INFORMATION
  Report Type: 
  Country: None (occurrence: None)
  Receive Date: 20090713
  Receipt Date: 20090702
  Transmission Date: 20100115
  Serious: Yes (Life-Threatening, Disabling, Congenital Anomaly)
  Sender: FDA-Public Use
  Company Number: A0681867A

PATIENT
  Sex: Male
  Weight: 2.8 kg

DRUGS (14)
  1. PAXIL [Suspect]
     Indication: ANXIETY
     Dosage: 60MG AT NIGHT
     Dates: start: 20010604, end: 20030417
  2. PAROXETINE HCL [Suspect]
     Indication: ANXIETY
     Route: 048
     Dates: start: 20030417, end: 20040101
  3. INSULIN [Concomitant]
     Indication: GESTATIONAL DIABETES
  4. VITAMIN TAB [Concomitant]
  5. WELLBUTRIN [Concomitant]
     Dosage: 100MG IN THE MORNING
     Route: 048
  6. PRENATE [Concomitant]
     Indication: PREGNANCY
     Dates: start: 20000101, end: 20030101
  7. MACROBID [Concomitant]
     Indication: URINARY TRACT INFECTION
     Dates: start: 20030716
  8. WELLBUTRIN SR [Concomitant]
     Indication: DEPRESSION
     Dates: start: 20030919
  9. CEFUROXIME [Concomitant]
     Dates: start: 20030804
  10. NITROFURANTOIN [Concomitant]
     Dates: start: 20030827
  11. LEXAPRO [Concomitant]
     Indication: DEPRESSION
     Route: 045
     Dates: start: 20021204
  12. ORTHO TRI-CYCLEN [Concomitant]
     Dates: start: 20021212
  13. CEPHALEXIN [Concomitant]
     Indication: INFECTION
     Dates: start: 20021212
  14. MEPROZINE [Concomitant]
     Indication: PAIN
     Dates: start: 20021212

REACTIONS (20)
  - ASTHMA [None]
  - BRONCHOPULMONARY DISEASE [None]
  - DEAFNESS [None]
  - DEFORMITY [None]
  - DRUG EXPOSURE DURING PREGNANCY [None]
  - DYSPEPSIA [None]
  - EPILEPSY [None]
  - GASTROOESOPHAGEAL REFLUX DISEASE [None]
  - HEMIPLEGIA [None]
  - HERNIA [None]
  - HYPOTHYROIDISM [None]
  - LARYNGEAL WEB [None]
  - LUNG DISORDER [None]
  - MOVEMENT DISORDER [None]
  - NERVOUS SYSTEM DISORDER [None]
  - PATENT DUCTUS ARTERIOSUS [None]
  - PHOTOSENSITIVITY REACTION [None]
  - TEMPERATURE INTOLERANCE [None]
  - VENTRICULAR SEPTAL DEFECT [None]
  - VISUAL IMPAIRMENT [None]
